FAERS Safety Report 16742252 (Version 43)
Quarter: 2022Q3

REPORT INFORMATION
  Report Type: Report from Study
  Country: GB (occurrence: GB)
  Receive Date: 20190826
  Receipt Date: 20220901
  Transmission Date: 20221027
  Serious: Yes (Death, Congenital Anomaly, Other)
  Sender: FDA-Public Use
  Company Number: GB-MYLANLABS-2019M1078696

PATIENT
  Age: 4 Day
  Sex: Male
  Weight: 2.85 kg

DRUGS (52)
  1. ABACAVIR SULFATE\LAMIVUDINE [Suspect]
     Active Substance: ABACAVIR SULFATE\LAMIVUDINE
     Indication: HIV infection
     Dosage: 1 DF, QD (TABLET) 600 MG/ 300 MG
     Route: 064
  2. ABACAVIR SULFATE\LAMIVUDINE [Suspect]
     Active Substance: ABACAVIR SULFATE\LAMIVUDINE
     Dosage: UNK
     Route: 065
  3. ABACAVIR SULFATE\LAMIVUDINE [Suspect]
     Active Substance: ABACAVIR SULFATE\LAMIVUDINE
     Dosage: 400 DOSAGE FORM, QD (ONCE A DAY )
     Route: 064
  4. ABACAVIR SULFATE\LAMIVUDINE [Suspect]
     Active Substance: ABACAVIR SULFATE\LAMIVUDINE
     Dosage: 600 MILLIGRAM, QD, ABACAVIR DOSE 600MG
     Route: 064
  5. LAMIVUDINE [Suspect]
     Active Substance: LAMIVUDINE
     Indication: HIV infection
     Dosage: 1 DOSAGE FORM, QD (DOSE: 1 TABLET/CAPSULE; STRENGTH: 600MG/ 300 MG)
     Route: 064
  6. LAMIVUDINE [Suspect]
     Active Substance: LAMIVUDINE
     Dosage: 1 DOSAGE FORM, QD (1 TABLET/CAPSULE; STRENGTH: 600 MG/ 300 MG)
     Route: 064
  7. LAMIVUDINE [Suspect]
     Active Substance: LAMIVUDINE
     Dosage: 1 DOSAGE FORM, QD
     Route: 064
  8. ABACAVIR [Suspect]
     Active Substance: ABACAVIR
     Indication: HIV infection
     Dosage: 1 DOSAGE FORM, QD (FILM COATED TABLETS) (DOSE: 1 TABLET/CAPSULE; STRENGTH: 600 MG/ 300 MG.
     Route: 064
  9. ABACAVIR [Suspect]
     Active Substance: ABACAVIR
     Dosage: 1 DOSAGE FORM, QD, MATERNAL DOSE: 400 QD
     Route: 064
  10. ABACAVIR [Suspect]
     Active Substance: ABACAVIR
     Dosage: 400 DOSAGE FORM, QD (400 DOSAGE FORM, ONCE A DAY)
     Route: 064
  11. ABACAVIR [Suspect]
     Active Substance: ABACAVIR
     Dosage: 1 DOSAGE FORM, QD
     Route: 064
  12. ABACAVIR [Suspect]
     Active Substance: ABACAVIR
     Dosage: UNK UNK, QD
     Route: 064
  13. ABACAVIR [Suspect]
     Active Substance: ABACAVIR
     Dosage: 400 DOSAGE FORM, QD (400 DOSAGE FORM, ONCE A DAY)
     Route: 064
  14. LABETALOL [Suspect]
     Active Substance: LABETALOL\LABETALOL HYDROCHLORIDE
     Indication: Hypertension
     Dosage: 1 DOSAGE FORM (1 TRIMESTER);
     Route: 064
  15. LABETALOL [Suspect]
     Active Substance: LABETALOL\LABETALOL HYDROCHLORIDE
     Dosage: UNK (39 WEEKS)
     Route: 064
  16. LABETALOL [Suspect]
     Active Substance: LABETALOL\LABETALOL HYDROCHLORIDE
     Dosage: UNK
     Route: 064
  17. LABETALOL [Suspect]
     Active Substance: LABETALOL\LABETALOL HYDROCHLORIDE
     Dosage: 1 DOSAGE FORM (1 TRIMESTER);
     Route: 064
  18. NEVIRAPINE [Suspect]
     Active Substance: NEVIRAPINE
     Indication: HIV infection
     Dosage: MATERNAL DOSE: 400 MG/DAY
     Route: 064
  19. NEVIRAPINE [Suspect]
     Active Substance: NEVIRAPINE
     Dosage: 400 MILLIGRAM, QD, 400 MG/DAY
     Route: 064
  20. NEVIRAPINE [Suspect]
     Active Substance: NEVIRAPINE
     Dosage: MATERNAL DOSE: UNKNOWN
     Route: 064
  21. NIFEDIPINE [Suspect]
     Active Substance: NIFEDIPINE
     Indication: Hypertension
     Dosage: UNK
     Route: 064
  22. NIFEDIPINE [Suspect]
     Active Substance: NIFEDIPINE
     Dosage: UNK (1 TRIMESTER)
     Route: 064
  23. NIFEDIPINE [Suspect]
     Active Substance: NIFEDIPINE
     Dosage: UNK
     Route: 064
  24. NIFEDIPINE [Suspect]
     Active Substance: NIFEDIPINE
     Dosage: MATERNAL DOSE: UNKNOWN
     Route: 064
  25. VIRAMUNE [Suspect]
     Active Substance: NEVIRAPINE
     Indication: HIV infection
     Dosage: 400 MILLIGRAM, QD
     Route: 064
  26. VIRAMUNE [Suspect]
     Active Substance: NEVIRAPINE
     Dosage: 400 MILLIGRAM, QD (1 TRIMESTER))
     Route: 064
  27. VIRAMUNE [Suspect]
     Active Substance: NEVIRAPINE
     Dosage: UNK
     Route: 064
  28. VIRAMUNE [Suspect]
     Active Substance: NEVIRAPINE
     Dosage: 400 MILLIGRAM, QD (1 TRIMESTER), MATERNAL DOSE: 400 MG, QD
     Route: 064
  29. ASPIRIN [Suspect]
     Active Substance: ASPIRIN
     Indication: Hypertension
     Dosage: UNK ( 1 TRIMESTER)
     Route: 064
  30. ASPIRIN [Suspect]
     Active Substance: ASPIRIN
     Dosage: 1 DOSAGE FORM,IN FIRST TRIMESTER (00002701);
     Route: 064
  31. ASPIRIN [Suspect]
     Active Substance: ASPIRIN
     Dosage: UNK
     Route: 064
  32. ERGOCALCIFEROL [Suspect]
     Active Substance: ERGOCALCIFEROL
     Indication: Product used for unknown indication
     Dosage: UNK
     Route: 064
  33. ERGOCALCIFEROL [Suspect]
     Active Substance: ERGOCALCIFEROL
     Dosage: UNK
     Route: 064
  34. ERGOCALCIFEROL [Suspect]
     Active Substance: ERGOCALCIFEROL
     Dosage: UNK
     Route: 064
  35. LAMIVUDINE [Suspect]
     Active Substance: LAMIVUDINE
     Indication: HIV infection
     Dosage: 1 DOSAGE FORM, QD (POWDER FOR INFUSION), DURING FIRST TRIMESTER;
     Route: 064
  36. LAMIVUDINE [Suspect]
     Active Substance: LAMIVUDINE
     Dosage: 1 DOSAGE FORM
     Route: 064
  37. CHOLECALCIFEROL [Suspect]
     Active Substance: CHOLECALCIFEROL
     Indication: Product used for unknown indication
     Dosage: UNK, (1 TRIMESTER)
     Route: 064
  38. CHOLECALCIFEROL [Suspect]
     Active Substance: CHOLECALCIFEROL
     Dosage: UNK, (1 TRIMESTER)
     Route: 064
  39. CHOLECALCIFEROL [Suspect]
     Active Substance: CHOLECALCIFEROL
     Dosage: UNK, (1 TRIMESTER)
     Route: 064
  40. COMBIVIR [Suspect]
     Active Substance: LAMIVUDINE\ZIDOVUDINE
     Indication: HIV infection
     Dosage: 900 MILLIGRAM, QD, (600MG/ 300 MG)
     Route: 064
  41. VITAMIN D [Suspect]
     Active Substance: VITAMIN D NOS
     Indication: Product used for unknown indication
     Dosage: UNK
     Route: 064
  42. VITAMIN D [Suspect]
     Active Substance: VITAMIN D NOS
     Dosage: UNK, PRIOR TO CONCEPTION, DURING 1, 2 AND 3 TRIMESTER, ( 39 WEEKS), VITAMIND2
     Route: 064
  43. LABETALOL [Suspect]
     Active Substance: LABETALOL\LABETALOL HYDROCHLORIDE
     Indication: Product used for unknown indication
     Dosage: 1 DOSAGE FORM (1 TRIMESTER);
     Route: 064
  44. LABETALOL [Suspect]
     Active Substance: LABETALOL\LABETALOL HYDROCHLORIDE
     Dosage: UNK (39 WEEKS)
     Route: 064
  45. LABETALOL [Suspect]
     Active Substance: LABETALOL\LABETALOL HYDROCHLORIDE
     Dosage: UNK
     Route: 064
  46. ASPIRIN [Concomitant]
     Active Substance: ASPIRIN
     Indication: Hypertension
     Dosage: UNK
     Route: 064
  47. ERGOCALCIFEROL [Concomitant]
     Active Substance: ERGOCALCIFEROL
     Indication: Product used for unknown indication
     Dosage: UNK
     Route: 064
  48. VITAMIN D2 [Concomitant]
     Active Substance: ERGOCALCIFEROL
     Indication: Product used for unknown indication
     Dosage: UNK, PRIOR TO CONCEPTION, DURING 1, 2 AND 3 TRIMESTER
     Route: 064
  49. VITAMIN D [Concomitant]
     Active Substance: VITAMIN D NOS
     Indication: Product used for unknown indication
     Dosage: UNK
     Route: 064
  50. VITAMIN D [Concomitant]
     Active Substance: VITAMIN D NOS
     Dosage: UNK
     Route: 064
  51. NIFEDIPINE [Concomitant]
     Active Substance: NIFEDIPINE
     Indication: Hypertension
     Dosage: UNK
     Route: 064
  52. NIFEDIPINE [Concomitant]
     Active Substance: NIFEDIPINE
     Dosage: UNK
     Route: 064

REACTIONS (15)
  - Death [Fatal]
  - Polydactyly [Fatal]
  - Trisomy 21 [Fatal]
  - Gene mutation [Fatal]
  - Pulmonary hypertension [Fatal]
  - Atrioventricular septal defect [Fatal]
  - Speech disorder developmental [Fatal]
  - Neurodevelopmental disorder [Fatal]
  - Dandy-Walker syndrome [Fatal]
  - Congenital central nervous system anomaly [Fatal]
  - Macrocephaly [Fatal]
  - Ataxia [Fatal]
  - Attention deficit hyperactivity disorder [Fatal]
  - Foetal exposure during pregnancy [Fatal]
  - Pre-eclampsia [Unknown]

NARRATIVE: CASE EVENT DATE: 20110305
